FAERS Safety Report 9909757 (Version 2)
Quarter: 2014Q2

REPORT INFORMATION
  Report Type: Spontaneous
  Country: US (occurrence: US)
  Receive Date: 20140219
  Receipt Date: 20140403
  Transmission Date: 20141212
  Serious: No
  Sender: FDA-Public Use
  Company Number: US-PFIZER INC-2014046894

PATIENT
  Age: 67 Year
  Sex: Female
  Weight: 84.81 kg

DRUGS (3)
  1. LYRICA [Suspect]
     Indication: DIABETIC NEUROPATHY
     Dosage: TAKING 100MG CAPSULE IN THE MORNING AND TWO CAPSULES OF 100MG AT ONCE AT NIGHT
     Route: 048
  2. LYRICA [Suspect]
     Dosage: UNK (DOSE INCREASE)
     Route: 048
  3. LYRICA [Suspect]
     Dosage: TAKING 100MG CAPSULE IN THE MORNING AND TWO CAPSULES OF 100MG AT ONCE AT NIGHT
     Route: 048
     Dates: end: 201401

REACTIONS (5)
  - Intentional product misuse [Unknown]
  - Pain [Unknown]
  - Gastric disorder [Unknown]
  - Constipation [Unknown]
  - Product packaging quantity issue [Unknown]
